FAERS Safety Report 10960707 (Version 1)
Quarter: 2015Q1

REPORT INFORMATION
  Report Type: Spontaneous
  Country: US (occurrence: None)
  Receive Date: 20150326
  Receipt Date: 20150326
  Transmission Date: 20150721
  Serious: Yes (Other)
  Sender: FDA-Public Use
  Company Number: None

PATIENT
  Age: 35 Year
  Sex: Female

DRUGS (1)
  1. TOPIRAMATE. [Suspect]
     Active Substance: TOPIRAMATE
     Indication: EPILEPSY
     Route: 048
     Dates: start: 20150303, end: 20150324

REACTIONS (4)
  - Drug level decreased [None]
  - Product substitution issue [None]
  - Product quality issue [None]
  - Seizure [None]

NARRATIVE: CASE EVENT DATE: 20150322
